FAERS Safety Report 7074944-9 (Version None)
Quarter: 2010Q4

REPORT INFORMATION
  Report Type: 
  Country: None (occurrence: None)
  Receive Date: 20101029
  Receipt Date: 20080716
  Transmission Date: 20110411
  Serious: Yes (Other)
  Sender: FDA-Public Use
  Company Number: US-AMGEN-STX206431

PATIENT

DRUGS (2)
  1. ENBREL [Suspect]
     Indication: RHEUMATOID ARTHRITIS
     Dosage: `
     Route: 058
     Dates: start: 20051001, end: 20061215
  2. METHOTREXATE [Concomitant]
     Dosage: UNK
     Dates: start: 20050101

REACTIONS (5)
  - AXILLARY MASS [None]
  - CORNEAL DISORDER [None]
  - MUSCLE SPASMS [None]
  - PAIN IN EXTREMITY [None]
  - PARAESTHESIA [None]
